FAERS Safety Report 13202219 (Version 1)
Quarter: 2017Q1

REPORT INFORMATION
  Report Type: Spontaneous
  Country: KZ (occurrence: KZ)
  Receive Date: 20170208
  Receipt Date: 20170208
  Transmission Date: 20170428
  Serious: Yes (Other)
  Sender: FDA-Public Use
  Company Number: KZ-TELIGENT, INC-IGIL20170042

PATIENT
  Age: 36 Year
  Sex: Female
  Weight: 45 kg

DRUGS (9)
  1. ZINACEF [Suspect]
     Active Substance: CEFUROXIME SODIUM
     Indication: SPUTUM PURULENT
  2. ZINACEF [Suspect]
     Active Substance: CEFUROXIME SODIUM
     Indication: PYREXIA
  3. ZINACEF [Suspect]
     Active Substance: CEFUROXIME SODIUM
     Indication: CHEST PAIN
  4. ZINACEF [Suspect]
     Active Substance: CEFUROXIME SODIUM
     Indication: OROPHARYNGEAL PAIN
  5. ZINACEF [Suspect]
     Active Substance: CEFUROXIME SODIUM
     Indication: NASOPHARYNGITIS
  6. ASCORIL SYRUP [Concomitant]
     Indication: PRODUCT USED FOR UNKNOWN INDICATION
     Route: 065
     Dates: start: 20161230, end: 20170115
  7. ZINACEF [Suspect]
     Active Substance: CEFUROXIME SODIUM
     Indication: COUGH
  8. ZINACEF [Suspect]
     Active Substance: CEFUROXIME SODIUM
     Indication: BRONCHITIS
     Route: 042
     Dates: start: 20161230, end: 20170101
  9. ZINACEF [Suspect]
     Active Substance: CEFUROXIME SODIUM
     Indication: RHINITIS

REACTIONS (7)
  - Arthralgia [Recovered/Resolved]
  - Inappropriate schedule of drug administration [None]
  - Oedema peripheral [Recovered/Resolved]
  - Joint swelling [Recovered/Resolved]
  - Suspected counterfeit product [Unknown]
  - Drug ineffective [Unknown]
  - Rheumatoid arthritis [Recovered/Resolved]

NARRATIVE: CASE EVENT DATE: 20161230
